FAERS Safety Report 8298297-3 (Version None)
Quarter: 2012Q2

REPORT INFORMATION
  Report Type: 
  Country: None (occurrence: None)
  Receive Date: 20120419
  Receipt Date: 20120119
  Transmission Date: 20120825
  Serious: No
  Sender: FDA-Public Use
  Company Number: US-BRISTOL-MYERS SQUIBB COMPANY-16329773

PATIENT
  Age: 60 Year
  Sex: Male

DRUGS (5)
  1. YERVOY [Suspect]
     Indication: MALIGNANT MELANOMA
     Dosage: 2ND DOSE ON 14DEC11
     Route: 042
     Dates: start: 20111123
  2. KEPPRA [Concomitant]
     Dates: start: 20110923
  3. COMPAZINE [Concomitant]
     Dosage: PRN
     Dates: start: 20111109
  4. GRANISETRON [Concomitant]
     Dates: start: 20111205
  5. ONDANSETRON [Concomitant]
     Dosage: PRN
     Dates: start: 20111025

REACTIONS (2)
  - HYPOTHYROIDISM [None]
  - HYPOPITUITARISM [None]
